FAERS Safety Report 20314290 (Version 1)
Quarter: 2022Q1

REPORT INFORMATION
  Report Type: Spontaneous
  Country: US (occurrence: US)
  Receive Date: 20220109
  Receipt Date: 20220109
  Transmission Date: 20220423
  Serious: No
  Sender: FDA-Public Use
  Company Number: US-SA-SAC20220105000967

PATIENT
  Age: 63 Year
  Sex: Male
  Weight: 99 kg

DRUGS (2)
  1. DUPIXENT [Suspect]
     Active Substance: DUPILUMAB
     Indication: Asthma
     Dosage: 300 MG, QOW
     Route: 058
     Dates: start: 201907
  2. ALLEGRA D 12 HOUR ALLERGY AND CONGESTION [Concomitant]
     Active Substance: FEXOFENADINE HYDROCHLORIDE\PSEUDOEPHEDRINE HYDROCHLORIDE

REACTIONS (2)
  - Dyspnoea [Unknown]
  - Taste disorder [Unknown]

NARRATIVE: CASE EVENT DATE: 20211201
